FAERS Safety Report 23821156 (Version 3)
Quarter: 2024Q2

REPORT INFORMATION
  Report Type: Spontaneous
  Country: CO (occurrence: CO)
  Receive Date: 20240506
  Receipt Date: 20240522
  Transmission Date: 20240715
  Serious: Yes (Other)
  Sender: FDA-Public Use
  Company Number: CO-GLAXOSMITHKLINE-CO2024AMR028099

PATIENT

DRUGS (1)
  1. NUCALA [Suspect]
     Active Substance: MEPOLIZUMAB
     Indication: Asthma
     Dosage: 100 MG, MO
     Dates: start: 20220224

REACTIONS (5)
  - Choking [Not Recovered/Not Resolved]
  - Asphyxia [Unknown]
  - Anxiety [Unknown]
  - Oropharyngeal pain [Not Recovered/Not Resolved]
  - Asthma [Not Recovered/Not Resolved]
